FAERS Safety Report 5557050-1 (Version None)
Quarter: 2007Q4

REPORT INFORMATION
  Report Type: 
  Country: None (occurrence: None)
  Receive Date: 20071214
  Receipt Date: 20071129
  Transmission Date: 20080405
  Serious: Yes (Death)
  Sender: FDA-Public Use
  Company Number: US-SANOFI-SYNTHELABO-A03200706735

PATIENT
  Age: 29 Year
  Sex: Female

DRUGS (3)
  1. ANGIOMAX [Suspect]
     Indication: CATHETERISATION CARDIAC
     Dosage: UNK
     Route: 042
     Dates: start: 20071102
  2. PLAVIX [Suspect]
     Dosage: UNK
     Route: 048
  3. PLAVIX [Suspect]
     Route: 065
     Dates: start: 20071102, end: 20071102

REACTIONS (1)
  - CORONARY ARTERY THROMBOSIS [None]
